FAERS Safety Report 16001931 (Version 1)
Quarter: 2019Q1

REPORT INFORMATION
  Report Type: Spontaneous
  Country: FR (occurrence: FR)
  Receive Date: 20190225
  Receipt Date: 20190225
  Transmission Date: 20190418
  Serious: Yes (Other)
  Sender: FDA-Public Use
  Company Number: FR-MYLANLABS-2019M1016280

PATIENT
  Age: 64 Year
  Sex: Female

DRUGS (1)
  1. MIDAZOLAM [Suspect]
     Active Substance: MIDAZOLAM HYDROCHLORIDE
     Indication: PALLIATIVE CARE
     Dosage: 10 MILLIGRAM, QH
     Route: 041
     Dates: start: 20180701

REACTIONS (5)
  - Medication error [Recovered/Resolved]
  - Device programming error [Recovered/Resolved]
  - Somnolence [Recovered/Resolved]
  - Incorrect product administration duration [Recovered/Resolved]
  - Incorrect dose administered [Recovered/Resolved]

NARRATIVE: CASE EVENT DATE: 20180701
